FAERS Safety Report 8984453 (Version 1)
Quarter: 2012Q4

REPORT INFORMATION
  Report Type: 
  Country: FR (occurrence: FR)
  Receive Date: 20121226
  Receipt Date: 20121226
  Transmission Date: 20130627
  Serious: Yes (Hospitalization, Other)
  Sender: FDA-Public Use
  Company Number: FR-BRISTOL-MYERS SQUIBB COMPANY-17226689

PATIENT
  Age: 79 Year
  Sex: Female

DRUGS (6)
  1. COUMADIN TABS 2 MG [Suspect]
     Indication: ARRHYTHMIA
     Dosage: scored tablet
     Route: 048
     Dates: start: 2005, end: 20120917
  2. NOVATREX [Concomitant]
     Indication: RHEUMATOID ARTHRITIS
     Dosage: 4 DF
     Route: 048
     Dates: start: 201205
  3. LEVOTHYROX [Concomitant]
     Indication: HYPOTHYROIDISM
     Dosage: 1 df,scored tablet
     Route: 048
     Dates: start: 1995
  4. ALDACTONE [Concomitant]
     Dosage: film-coated scored tablet
     Route: 048
  5. LASILIX FAIBLE [Concomitant]
     Dosage: tablet
     Route: 048
  6. SPECIAFOLDINE [Concomitant]
     Dosage: tablet
     Route: 048

REACTIONS (4)
  - Anaemia [Recovered/Resolved]
  - Renal failure [Recovered/Resolved]
  - International normalised ratio increased [Recovered/Resolved]
  - Overdose [Unknown]
